FAERS Safety Report 4353282-9 (Version None)
Quarter: 2004Q2

REPORT INFORMATION
  Report Type: 
  Country: None (occurrence: None)
  Receive Date: 20040504
  Receipt Date: 20040420
  Transmission Date: 20050107
  Serious: Yes (Death)
  Sender: FDA-Public Use
  Company Number: 2004S1001152

PATIENT
  Age: 53 Year
  Sex: Male

DRUGS (7)
  1. CLOZAPINE [Suspect]
     Indication: SCHIZOPHRENIA
     Dosage: 100MG Q HS, ORAL
     Route: 048
     Dates: end: 20040318
  2. COLCHICINE [Concomitant]
  3. ALLOPURINOL TAB [Concomitant]
  4. NIFEDIPINE [Concomitant]
  5. IBUPROFEN [Concomitant]
  6. HALOPERIDOL DECANOATE [Concomitant]
  7. DIPHENHYDRAMINE HCL [Concomitant]

REACTIONS (1)
  - SUDDEN CARDIAC DEATH [None]
